FAERS Safety Report 9809184 (Version 1)
Quarter: 2014Q1

REPORT INFORMATION
  Report Type: Spontaneous
  Country: US (occurrence: US)
  Receive Date: 20140110
  Receipt Date: 20140110
  Transmission Date: 20141002
  Serious: No
  Sender: FDA-Public Use
  Company Number: US-BAUSCH-BL-2013-006223

PATIENT
  Age: 74 Year
  Sex: Male
  Weight: 83.99 kg

DRUGS (3)
  1. LATANOPROST OPHTHALMIC SOLUTION 0.005% [Suspect]
     Indication: INTRAOCULAR PRESSURE TEST
     Dosage: 1 DROP; RIGHT EYE; ONCE DAILY
     Route: 047
     Dates: start: 201306
  2. LATANOPROST OPHTHALMIC SOLUTION 0.005% [Suspect]
     Dosage: 1 DROP; LEFT EYE; ONCE DAILY
     Route: 047
     Dates: start: 201306
  3. LISINOPRIL [Concomitant]
     Indication: HYPERTENSION

REACTIONS (1)
  - Intraocular pressure increased [Not Recovered/Not Resolved]
